FAERS Safety Report 20208941 (Version 1)
Quarter: 2021Q4

REPORT INFORMATION
  Report Type: Report from Study
  Country: FR (occurrence: FR)
  Receive Date: 20211220
  Receipt Date: 20211220
  Transmission Date: 20220304
  Serious: Yes (Hospitalization, Other)
  Sender: FDA-Public Use
  Company Number: FR-BAXTER-2021BAX035007

PATIENT
  Age: 65 Year
  Sex: Female
  Weight: 109 kg

DRUGS (13)
  1. DEXAMETHASONE [Suspect]
     Active Substance: DEXAMETHASONE
     Indication: Acute lymphocytic leukaemia
     Dosage: 40 MILLIGRAM (TOTAL INDUCTION 2)
     Route: 065
  2. DEXAMETHASONE [Suspect]
     Active Substance: DEXAMETHASONE
     Dosage: 160 MILLIGRAM (TOTAL INDUCTION 1)
     Route: 065
  3. METHOTREXATE SODIUM [Suspect]
     Active Substance: METHOTREXATE SODIUM
     Indication: Acute lymphocytic leukaemia
     Dosage: 15 MILLIGRAM, QD (1X/DAY (PREPHASE)
     Route: 037
     Dates: start: 20190712, end: 20190712
  4. METHOTREXATE SODIUM [Suspect]
     Active Substance: METHOTREXATE SODIUM
     Dosage: 15 MILLIGRAM, QD (1X/DAY (PREPHASE)
     Route: 037
  5. INOTUZUMAB OZOGAMICIN [Suspect]
     Active Substance: INOTUZUMAB OZOGAMICIN
     Indication: Acute lymphocytic leukaemia
     Dosage: 1.6 MILLIGRAM, QD (INDUCTION 1, DAY 1)
     Route: 042
     Dates: start: 20190720, end: 20190720
  6. INOTUZUMAB OZOGAMICIN [Suspect]
     Active Substance: INOTUZUMAB OZOGAMICIN
     Dosage: 1 MILLIGRAM, QD (INDUCTION 1, DAY 8)
     Route: 042
     Dates: start: 20190727, end: 20190727
  7. INOTUZUMAB OZOGAMICIN [Suspect]
     Active Substance: INOTUZUMAB OZOGAMICIN
     Dosage: 1 MILLIGRAM, QD (INDUCTION 1, DAY 15)
     Route: 042
     Dates: start: 20190803, end: 20190803
  8. INOTUZUMAB OZOGAMICIN [Suspect]
     Active Substance: INOTUZUMAB OZOGAMICIN
     Dosage: 1 MILLIGRAM, QD (INDUCTION 2, DAY 1)
     Route: 042
     Dates: start: 20190827, end: 20190827
  9. INOTUZUMAB OZOGAMICIN [Suspect]
     Active Substance: INOTUZUMAB OZOGAMICIN
     Dosage: 1 MILLIGRAM, QD (INDUCTION 2, DAY 8)
     Route: 042
     Dates: start: 20190903, end: 20190903
  10. VINCRISTINE [Suspect]
     Active Substance: VINCRISTINE
     Indication: Acute lymphocytic leukaemia
     Dosage: 8 MILLIGRAM, QD (1X/DAY)
     Route: 042
  11. CYCLOPHOSPHAMIDE [Suspect]
     Active Substance: CYCLOPHOSPHAMIDE
     Indication: Acute lymphocytic leukaemia
     Dosage: 1800 MG IN TOTAL (DATES OF ADMINISTRATIONS NOT DETAILED, INDUCTION 2)
     Route: 037
  12. CYTARABINE [Concomitant]
     Active Substance: CYTARABINE
     Indication: Acute myeloid leukaemia
     Dosage: 6000 MILLIGRAM, QD ((REPORTED ALSO INTRATHECAL) (CONSOLIDATION 1 D1-2)
     Route: 042
     Dates: start: 20191012, end: 20191013
  13. CYTARABINE [Concomitant]
     Active Substance: CYTARABINE
     Dosage: 40 MILLIGRAM
     Route: 037

REACTIONS (1)
  - Device related sepsis [Unknown]

NARRATIVE: CASE EVENT DATE: 20191009
